FAERS Safety Report 5129961-2 (Version None)
Quarter: 2006Q4

REPORT INFORMATION
  Report Type: 
  Country: None (occurrence: None)
  Receive Date: 20061013
  Receipt Date: 20061002
  Transmission Date: 20070319
  Serious: Yes (Other)
  Sender: FDA-Public Use
  Company Number: 148337ISR

PATIENT
  Age: 36 Year
  Sex: Female

DRUGS (2)
  1. LACTULOSE [Suspect]
     Dates: start: 20051123, end: 20051231
  2. ONDANSETRON [Suspect]
     Indication: PROPHYLAXIS OF NAUSEA AND VOMITING
     Dosage: 10 MG (5 MG, 2 IN 1 D) ORAL
     Route: 048
     Dates: start: 20051115, end: 20051231

REACTIONS (3)
  - DRUG EXPOSURE DURING PREGNANCY [None]
  - FOOD INTOLERANCE [None]
  - HYPEREMESIS GRAVIDARUM [None]
